FAERS Safety Report 6334486-2 (Version None)
Quarter: 2009Q3

REPORT INFORMATION
  Report Type: 
  Country: None (occurrence: None)
  Receive Date: 20090831
  Receipt Date: 20090817
  Transmission Date: 20100115
  Serious: Yes (Death, Hospitalization)
  Sender: FDA-Public Use
  Company Number: NL-CELGENEUS-114-50794-09071118

PATIENT
  Sex: Male

DRUGS (44)
  1. VIDAZA [Suspect]
     Route: 058
     Dates: start: 20090624, end: 20090630
  2. VORICONAZOLE [Concomitant]
     Indication: DRUG USE FOR UNKNOWN INDICATION
     Route: 051
     Dates: start: 20090818, end: 20090818
  3. VORICONAZOLE [Concomitant]
     Route: 051
     Dates: start: 20090812, end: 20090816
  4. VORICONAZOLE [Concomitant]
     Route: 051
     Dates: start: 20090811, end: 20090812
  5. FENTANYL [Concomitant]
     Indication: DRUG USE FOR UNKNOWN INDICATION
     Route: 051
     Dates: start: 20090711, end: 20090816
  6. FENTANYL [Concomitant]
     Route: 051
     Dates: start: 20090810, end: 20090816
  7. FENTANYL [Concomitant]
     Route: 051
     Dates: start: 20090810, end: 20090810
  8. FENTANYL [Concomitant]
     Route: 051
     Dates: start: 20090810, end: 20090816
  9. FENTANYL [Concomitant]
     Route: 062
     Dates: start: 20090807, end: 20090810
  10. FUROSEMIDE [Concomitant]
     Indication: DRUG USE FOR UNKNOWN INDICATION
     Route: 051
     Dates: start: 20090816, end: 20090816
  11. POTASSIUM CHLORIDE [Concomitant]
     Indication: DRUG USE FOR UNKNOWN INDICATION
     Route: 048
     Dates: start: 20090815, end: 20090816
  12. GLUCOSE [Concomitant]
     Indication: DRUG USE FOR UNKNOWN INDICATION
     Route: 051
     Dates: start: 20090815, end: 20090816
  13. DIGOXIN [Concomitant]
     Indication: DRUG USE FOR UNKNOWN INDICATION
     Route: 051
     Dates: start: 20090814, end: 20090815
  14. DIGOXIN [Concomitant]
     Route: 051
     Dates: start: 20090814, end: 20090816
  15. SODIUM CHLORIDE [Concomitant]
     Indication: DRUG USE FOR UNKNOWN INDICATION
     Route: 051
     Dates: start: 20090614, end: 20090815
  16. SODIUM CHLORIDE [Concomitant]
     Route: 051
     Dates: start: 20090814, end: 20090816
  17. SODIUM CHLORIDE [Concomitant]
     Route: 051
     Dates: start: 20090814, end: 20090814
  18. SODIUM CHLORIDE [Concomitant]
     Route: 051
     Dates: start: 20090813, end: 20090814
  19. SODIUM CHLORIDE [Concomitant]
     Route: 051
     Dates: start: 20090731, end: 20090813
  20. SODIUM CHLORIDE [Concomitant]
     Route: 051
     Dates: start: 20090807, end: 20090811
  21. SODIUM CHLORIDE [Concomitant]
     Route: 051
     Dates: start: 20090708, end: 20090713
  22. PARACETAMOL [Concomitant]
     Indication: DRUG USE FOR UNKNOWN INDICATION
     Route: 048
     Dates: start: 20090813, end: 20090814
  23. PARACETAMOL [Concomitant]
     Route: 048
     Dates: start: 20090713, end: 20090806
  24. METRONIDAZOLE [Concomitant]
     Indication: DRUG USE FOR UNKNOWN INDICATION
     Route: 051
  25. HEPARIN [Concomitant]
     Indication: DRUG USE FOR UNKNOWN INDICATION
     Route: 051
     Dates: start: 20090811, end: 20090816
  26. ACYCLOVIR [Concomitant]
     Indication: DRUG USE FOR UNKNOWN INDICATION
     Route: 065
     Dates: start: 20090810, end: 20090814
  27. LACTULOSE [Concomitant]
     Indication: DRUG USE FOR UNKNOWN INDICATION
     Route: 048
     Dates: start: 20090619, end: 20090814
  28. VALACYCLOVIR HCL [Concomitant]
     Indication: DRUG USE FOR UNKNOWN INDICATION
     Route: 048
     Dates: start: 20090801, end: 20090810
  29. VALACYCLOVIR HCL [Concomitant]
     Route: 048
     Dates: start: 20090809, end: 20090809
  30. FLUCONAZOLE [Concomitant]
     Indication: DRUG USE FOR UNKNOWN INDICATION
     Route: 051
     Dates: start: 20090802, end: 20090811
  31. FLUCONAZOLE [Concomitant]
     Route: 048
     Dates: start: 20090802, end: 20090809
  32. PANTOPRAZOLE SODIUM [Concomitant]
     Indication: DRUG USE FOR UNKNOWN INDICATION
     Route: 051
     Dates: start: 20090809, end: 20090816
  33. PANTOPRAZOLE SODIUM [Concomitant]
     Route: 048
     Dates: start: 20090808, end: 20090809
  34. SALBUTAMOL [Concomitant]
     Indication: DRUG USE FOR UNKNOWN INDICATION
     Route: 055
     Dates: start: 20090808, end: 20090816
  35. IMIPENEM+CILASTATINA [Concomitant]
     Indication: DRUG USE FOR UNKNOWN INDICATION
     Route: 051
     Dates: start: 20090731, end: 20090816
  36. COTRIM [Concomitant]
     Indication: DRUG USE FOR UNKNOWN INDICATION
     Route: 065
     Dates: start: 20090731
  37. TEMAZEPAM [Concomitant]
     Indication: DRUG USE FOR UNKNOWN INDICATION
     Route: 048
     Dates: start: 20090801, end: 20090814
  38. NULYTELY [Concomitant]
     Indication: DRUG USE FOR UNKNOWN INDICATION
     Route: 048
     Dates: start: 20090713, end: 20090810
  39. NITROGLYCERIN [Concomitant]
     Indication: DRUG USE FOR UNKNOWN INDICATION
     Route: 060
     Dates: start: 20090717, end: 20090814
  40. KLYX KLYSMA [Concomitant]
     Indication: DRUG USE FOR UNKNOWN INDICATION
     Route: 054
     Dates: start: 20090711, end: 20090713
  41. BISACODYL [Concomitant]
     Indication: DRUG USE FOR UNKNOWN INDICATION
     Route: 048
     Dates: start: 20090711, end: 20090713
  42. OXYCODON [Concomitant]
     Indication: DRUG USE FOR UNKNOWN INDICATION
     Route: 048
     Dates: start: 20090619, end: 20090711
  43. OXYCONTIN [Concomitant]
     Indication: DRUG USE FOR UNKNOWN INDICATION
     Route: 048
     Dates: start: 20090619, end: 20090712
  44. MORPHINE [Concomitant]
     Indication: PAIN
     Route: 062
     Dates: start: 20090713, end: 20090810

REACTIONS (4)
  - CHEST PAIN [None]
  - FEBRILE NEUTROPENIA [None]
  - MEDIASTINITIS [None]
  - PULMONARY EMBOLISM [None]
